FAERS Safety Report 9353229 (Version 1)
Quarter: 2013Q2

REPORT INFORMATION
  Report Type: Spontaneous
  Country: US (occurrence: None)
  Receive Date: 20130617
  Receipt Date: 20130617
  Transmission Date: 20140414
  Serious: No
  Sender: FDA-Public Use
  Company Number: None

PATIENT
  Age: 48 Year
  Sex: Female
  Weight: 67.13 kg

DRUGS (1)
  1. TIZANIDINE HCL [Suspect]
     Indication: MUSCLE SPASMS
     Dates: start: 20130410, end: 20130427

REACTIONS (2)
  - Mood swings [None]
  - Feeling abnormal [None]
